FAERS Safety Report 18590012 (Version 1)
Quarter: 2020Q4

REPORT INFORMATION
  Report Type: Spontaneous
  Country: US (occurrence: US)
  Receive Date: 20201207
  Receipt Date: 20201207
  Transmission Date: 20210114
  Serious: Yes (Hospitalization)
  Sender: FDA-Public Use
  Company Number: None

PATIENT
  Age: 63 Year
  Sex: Female
  Weight: 57.6 kg

DRUGS (7)
  1. ACETAMINOPHEN 500MG TABLET [Concomitant]
  2. CYCLOBENZAPRINE 5MG [Concomitant]
     Active Substance: CYCLOBENZAPRINE
  3. IBUPROFEN 600MG TABLET [Concomitant]
     Active Substance: IBUPROFEN
  4. AMLODIPINE [Suspect]
     Active Substance: AMLODIPINE BESYLATE
     Indication: HYPERTENSION
     Route: 048
     Dates: start: 20201119, end: 20201121
  5. DICLOFENAC 1% GEL [Concomitant]
     Active Substance: DICLOFENAC
  6. VITAMIN D3 1000UNIT CAPSULE [Concomitant]
  7. LATANOPROST 0.005% OPHTHALMIC SOLUTION [Concomitant]
     Active Substance: LATANOPROST

REACTIONS (6)
  - Decreased appetite [None]
  - Dizziness [None]
  - Vomiting [None]
  - Nausea [None]
  - Hyponatraemia [None]
  - Asthenia [None]

NARRATIVE: CASE EVENT DATE: 20201121
